FAERS Safety Report 4677042-4 (Version None)
Quarter: 2005Q2

REPORT INFORMATION
  Report Type: 
  Country: None (occurrence: None)
  Receive Date: 20050525
  Receipt Date: 20050202
  Transmission Date: 20051028
  Serious: No
  Sender: FDA-Public Use
  Company Number: SU-2005-003067

PATIENT
  Age: 57 Year
  Sex: Female
  Weight: 136.0791 kg

DRUGS (3)
  1. BENICAR [Suspect]
     Indication: HYPERTENSION
     Dosage: 5 MG QD PO
     Route: 048
     Dates: start: 20050102
  2. RANITIDINE [Concomitant]
  3. URSODIOL [Concomitant]

REACTIONS (2)
  - EPISTAXIS [None]
  - VISION BLURRED [None]
